FAERS Safety Report 19867567 (Version 1)
Quarter: 2021Q3

REPORT INFORMATION
  Report Type: Spontaneous
  Country: CA (occurrence: CA)
  Receive Date: 20210922
  Receipt Date: 20210922
  Transmission Date: 20211014
  Serious: Yes (Other)
  Sender: FDA-Public Use
  Company Number: CA-GLAXOSMITHKLINE-CA2021AMR196454

PATIENT
  Age: 10 Year
  Sex: Female

DRUGS (14)
  1. LOPINAVIR+RITONAVIR [Suspect]
     Active Substance: LOPINAVIR\RITONAVIR
     Indication: ANTIRETROVIRAL THERAPY
     Dosage: UNK
     Route: 065
  2. AMPHOTERICIN B. [Suspect]
     Active Substance: AMPHOTERICIN B
     Indication: HISTOPLASMOSIS DISSEMINATED
     Dosage: 1 MG/KG, QD
     Route: 065
  3. MEPERIDINE [Suspect]
     Active Substance: MEPERIDINE
     Indication: ANALGESIC THERAPY
  4. ABACAVIR. [Suspect]
     Active Substance: ABACAVIR
     Indication: ANTIRETROVIRAL THERAPY
     Dosage: UNK
     Route: 065
  5. TIVICAY [Suspect]
     Active Substance: DOLUTEGRAVIR SODIUM
     Indication: ANTIRETROVIRAL THERAPY
     Dosage: UNK
     Route: 065
  6. ZIDOVUDINE. [Suspect]
     Active Substance: ZIDOVUDINE
     Indication: ANTIRETROVIRAL THERAPY
     Dosage: UNK
     Route: 065
  7. ACETAMINOPHEN. [Suspect]
     Active Substance: ACETAMINOPHEN
     Indication: DRUG TOXICITY PROPHYLAXIS
     Dosage: UNK
     Route: 065
  8. LAMIVUDINE HIV [Suspect]
     Active Substance: LAMIVUDINE
     Indication: ANTIRETROVIRAL THERAPY
     Dosage: UNK
     Route: 065
  9. SPORANOX [Suspect]
     Active Substance: ITRACONAZOLE
     Indication: HISTOPLASMOSIS DISSEMINATED
     Dosage: 200 MG, QD
     Route: 065
  10. AMPHOTERICIN B. [Suspect]
     Active Substance: AMPHOTERICIN B
     Dosage: UNK
  11. MEPERIDINE [Suspect]
     Active Substance: MEPERIDINE
     Indication: CHILLS
  12. CHLORPHENIRAMINE. [Suspect]
     Active Substance: CHLORPHENIRAMINE
     Indication: DRUG TOXICITY PROPHYLAXIS
     Dosage: UNK
     Route: 065
  13. EFAVIRENZ. [Suspect]
     Active Substance: EFAVIRENZ
     Indication: ANTIRETROVIRAL THERAPY
     Dosage: UNK
     Route: 065
  14. MEPERIDINE [Suspect]
     Active Substance: MEPERIDINE
     Indication: DRUG TOXICITY PROPHYLAXIS
     Dosage: UNK
     Route: 065

REACTIONS (3)
  - Nephropathy toxic [Recovered/Resolved]
  - Disease recurrence [Recovered/Resolved]
  - Chills [Recovered/Resolved]
